FAERS Safety Report 5390851-1 (Version None)
Quarter: 2007Q3

REPORT INFORMATION
  Report Type: 
  Country: None (occurrence: None)
  Receive Date: 20070716
  Receipt Date: 20070703
  Transmission Date: 20080115
  Serious: Yes (Hospitalization)
  Sender: FDA-Public Use
  Company Number: 13026

PATIENT
  Age: 81 Year
  Sex: Female

DRUGS (11)
  1. CARBOPLATIN [Suspect]
     Indication: NON-SMALL CELL LUNG CANCER
  2. CARBOPLATIN [Suspect]
     Indication: OVARIAN EPITHELIAL CANCER
  3. CARBOPLATIN [Suspect]
     Indication: PROSTATE CANCER METASTATIC
  4. PACLITAXEL [Suspect]
     Indication: NON-SMALL CELL LUNG CANCER
  5. PACLITAXEL [Suspect]
     Indication: OVARIAN EPITHELIAL CANCER
  6. PACLITAXEL [Suspect]
     Indication: PROSTATE CANCER METASTATIC
  7. DMXAA [Suspect]
     Indication: NON-SMALL CELL LUNG CANCER
     Dosage: 5580 MICROGRAM FREQ IV
     Route: 042
     Dates: start: 20050701, end: 20050825
  8. DMXAA [Suspect]
     Indication: OVARIAN EPITHELIAL CANCER
     Dosage: 5580 MICROGRAM FREQ IV
     Route: 042
     Dates: start: 20050701, end: 20050825
  9. DMXAA [Suspect]
     Indication: PROSTATE CANCER METASTATIC
     Dosage: 5580 MICROGRAM FREQ IV
     Route: 042
     Dates: start: 20050701, end: 20050825
  10. LEVOTHYROXINE SODIUM [Concomitant]
  11. POLYETHYLENE GLYCOL [Concomitant]

REACTIONS (5)
  - ASTHENIA [None]
  - PLATELET COUNT DECREASED [None]
  - SYNCOPE [None]
  - VOMITING [None]
  - WHITE BLOOD CELL COUNT DECREASED [None]
